FAERS Safety Report 7302029 (Version 3)
Quarter: 2013Q3

REPORT INFORMATION
  Report Type: Spontaneous
  Country: US (occurrence: US)
  Receive Date: 20100302
  Receipt Date: 20130821
  Transmission Date: 20140515
  Serious: Yes (Other)
  Sender: FDA-Public Use
  Company Number: US-B.I. PHARMACEUTICALS,INC./RIDGEFIELD-2010-BP-02196BP

PATIENT
  Age: 89 Year
  Sex: Female

DRUGS (3)
  1. SPIRIVA HANDIHALER [Suspect]
     Indication: CHRONIC OBSTRUCTIVE PULMONARY DISEASE
     Dosage: 18 MCG
     Dates: start: 2009
  2. SPIRIVA HANDIHALER [Suspect]
     Indication: EMPHYSEMA
     Dosage: 18 MCG
     Route: 048
     Dates: start: 2009
  3. ADVAIR 500 [Concomitant]

REACTIONS (3)
  - Lung neoplasm malignant [Recovered/Resolved]
  - Drug ineffective [Recovered/Resolved]
  - Incorrect route of drug administration [Recovered/Resolved]
